FAERS Safety Report 4839886-5 (Version None)
Quarter: 2005Q4

REPORT INFORMATION
  Report Type: 
  Country: None (occurrence: None)
  Receive Date: 20051129
  Receipt Date: 20051013
  Transmission Date: 20060501
  Serious: Yes (Hospitalization)
  Sender: FDA-Public Use
  Company Number: JP-ROCHE-421601

PATIENT
  Age: 46 Year
  Sex: Female

DRUGS (10)
  1. CAPECITABINE [Suspect]
     Indication: BREAST CANCER METASTATIC
     Dosage: THREE WEEKS ADMINISTRATION FOLLOWED BY ONE WEEKS REST.
     Route: 048
     Dates: start: 20041004, end: 20041025
  2. CAPECITABINE [Suspect]
     Dosage: THREE WEEKS ADMINISTRATION FOLLOWED BY ONE WEEKS REST.
     Route: 048
     Dates: start: 20041102, end: 20041108
  3. CAPECITABINE [Suspect]
     Dosage: THREE WEEKS ADMINISTRATION FOLLOWED BY ONE WEEKS REST.
     Route: 048
     Dates: start: 20041119, end: 20041210
  4. PREDNISOLONE [Suspect]
     Route: 048
     Dates: start: 20040726, end: 20041012
  5. PREDNISOLONE [Suspect]
     Dosage: REDUCED DOSAGE.
     Route: 048
     Dates: start: 20041013
  6. FRUSEMIDE [Concomitant]
     Dosage: 40 MG COMMENCED ON 5 AUGUST 2004 TILL 12 JANUARY 2005.
     Route: 048
     Dates: start: 20040726, end: 20040804
  7. LOXOPROFEN SODIUM [Concomitant]
     Route: 048
     Dates: start: 20040727, end: 20050112
  8. ORCIPRENALINE SULFATE [Concomitant]
     Route: 048
     Dates: start: 20040804, end: 20050112
  9. FAMOTIDINE [Concomitant]
     Route: 048
     Dates: start: 20041210, end: 20050112
  10. URSODESOXYCHOLIC ACID [Concomitant]
     Route: 048
     Dates: start: 20041210, end: 20050112

REACTIONS (3)
  - ALANINE AMINOTRANSFERASE INCREASED [None]
  - ASPARTATE AMINOTRANSFERASE INCREASED [None]
  - GAMMA-GLUTAMYLTRANSFERASE INCREASED [None]
